FAERS Safety Report 13432578 (Version 2)
Quarter: 2017Q2

REPORT INFORMATION
  Report Type: Report from Study
  Country: CN (occurrence: CN)
  Receive Date: 20170412
  Receipt Date: 20170612
  Transmission Date: 20170830
  Serious: Yes (Hospitalization)
  Sender: FDA-Public Use
  Company Number: CN-ASTELLAS-2017US010384

PATIENT
  Age: 25 Year
  Sex: Female
  Weight: 56 kg

DRUGS (10)
  1. PREDNISONE. [Concomitant]
     Active Substance: PREDNISONE
     Route: 048
     Dates: start: 20170309
  2. TACROLIMUS. [Suspect]
     Active Substance: TACROLIMUS
     Indication: LUPUS NEPHRITIS
     Dosage: 2 MG , EVERY 12 HOURS
     Route: 048
     Dates: start: 20161215
  3. TACROLIMUS. [Suspect]
     Active Substance: TACROLIMUS
     Dosage: 6 MG DAILY DOSE, EVERY 12 HOURS
     Route: 048
     Dates: start: 20161229, end: 20170312
  4. PREDNISONE. [Concomitant]
     Active Substance: PREDNISONE
     Route: 048
     Dates: start: 20170223, end: 20170308
  5. NIFEDIPINE. [Concomitant]
     Active Substance: NIFEDIPINE
     Indication: LUPUS NEPHRITIS
     Route: 048
     Dates: start: 20161209
  6. TACROLIMUS. [Suspect]
     Active Substance: TACROLIMUS
     Dosage: 6 MG DAILY DOSE, EVERY 12 HOURS
     Route: 048
     Dates: start: 20170315
  7. TACROLIMUS. [Suspect]
     Active Substance: TACROLIMUS
     Route: 065
  8. PREDNISONE. [Concomitant]
     Active Substance: PREDNISONE
     Indication: LUPUS NEPHRITIS
     Route: 048
     Dates: start: 20170209, end: 20170222
  9. HYDROXYCHLOROQUINE SULFATE. [Concomitant]
     Active Substance: HYDROXYCHLOROQUINE SULFATE
     Indication: LUPUS NEPHRITIS
     Dosage: 2 DF DAILY DOSE, TWICE DAILY
     Route: 048
     Dates: start: 20161209
  10. CALCITRIOL. [Concomitant]
     Active Substance: CALCITRIOL
     Indication: LUPUS NEPHRITIS
     Dosage: 0.25 ?G, ONCE DAILY
     Route: 048
     Dates: start: 20161201

REACTIONS (1)
  - Fungal test positive [Recovered/Resolved]

NARRATIVE: CASE EVENT DATE: 20170308
